FAERS Safety Report 7692048-9 (Version None)
Quarter: 2011Q3

REPORT INFORMATION
  Report Type: 
  Country: None (occurrence: None)
  Receive Date: 20110818
  Receipt Date: 20110805
  Transmission Date: 20111222
  Serious: Yes (Hospitalization, Other)
  Sender: FDA-Public Use
  Company Number: PHHY2011GB70902

PATIENT
  Sex: Male
  Weight: 86 kg

DRUGS (1)
  1. METRONIDAZOLE [Suspect]
     Indication: GINGIVAL ABSCESS
     Dosage: 1 DF, TID
     Dates: start: 20090518

REACTIONS (9)
  - ERYTHEMA [None]
  - FATIGUE [None]
  - RASH GENERALISED [None]
  - SOMNOLENCE [None]
  - HEADACHE [None]
  - SYNCOPE [None]
  - BLISTER [None]
  - PHOTOSENSITIVITY REACTION [None]
  - DIZZINESS [None]
